FAERS Safety Report 10262601 (Version 1)
Quarter: 2014Q2

REPORT INFORMATION
  Report Type: Spontaneous
  Country: TR (occurrence: TR)
  Receive Date: 20140626
  Receipt Date: 20140626
  Transmission Date: 20141212
  Serious: Yes (Other)
  Sender: FDA-Public Use
  Company Number: TR-ACTAVIS-2014-14244

PATIENT
  Sex: 0

DRUGS (3)
  1. NIFEDIPINE (UNKNOWN) [Suspect]
     Indication: TOCOLYSIS
     Dosage: 20 MG, Q4H
     Route: 064
  2. BETAMETHASONE (UNKNOWN) [Suspect]
     Indication: TOCOLYSIS
     Dosage: 12 MG, DAILY
     Route: 064
  3. AMOXICILLIN [Concomitant]
     Indication: PRODUCT USED FOR UNKNOWN INDICATION
     Route: 064

REACTIONS (4)
  - Bradycardia foetal [Unknown]
  - Apgar score low [Unknown]
  - Premature baby [Unknown]
  - Foetal exposure during pregnancy [Unknown]
